FAERS Safety Report 5673624-1 (Version None)
Quarter: 2008Q1

REPORT INFORMATION
  Report Type: 
  Country: None (occurrence: None)
  Receive Date: 20080319
  Receipt Date: 20080307
  Transmission Date: 20080703
  Serious: Yes (Disabling)
  Sender: FDA-Public Use
  Company Number: BE-PFIZER INC-2008014197

PATIENT
  Age: 37 Year
  Sex: Male

DRUGS (1)
  1. MEDROL [Suspect]

REACTIONS (1)
  - OSTEONECROSIS [None]
